FAERS Safety Report 15486204 (Version 1)
Quarter: 2018Q4

REPORT INFORMATION
  Report Type: Spontaneous
  Country: US (occurrence: US)
  Receive Date: 20181011
  Receipt Date: 20181011
  Transmission Date: 20190205
  Serious: No
  Sender: FDA-Public Use
  Company Number: US-JNJFOC-20180934558

PATIENT
  Age: 69 Year
  Sex: Female
  Weight: 59 kg

DRUGS (5)
  1. ZOVIRAX [Concomitant]
     Active Substance: ACYCLOVIR
  2. IMBRUVICA [Suspect]
     Active Substance: IBRUTINIB
     Indication: MYELOID LEUKAEMIA
     Route: 048
     Dates: start: 20180904
  3. GABAPENTIN. [Concomitant]
     Active Substance: GABAPENTIN
  4. CALCIUM [Concomitant]
     Active Substance: CALCIUM
  5. VITAMIN D3 [Concomitant]
     Active Substance: CHOLECALCIFEROL

REACTIONS (4)
  - Swelling [Recovering/Resolving]
  - Weight increased [Unknown]
  - Product use in unapproved indication [Unknown]
  - Off label use [Unknown]

NARRATIVE: CASE EVENT DATE: 20180904
